FAERS Safety Report 23348037 (Version 1)
Quarter: 2023Q4

REPORT INFORMATION
  Report Type: Spontaneous
  Country: US (occurrence: US)
  Receive Date: 20231228
  Receipt Date: 20231228
  Transmission Date: 20240109
  Serious: No
  Sender: FDA-Public Use
  Company Number: US-Calliditas-2023CAL01672

PATIENT
  Age: 40 Year
  Sex: Female
  Weight: 57.61 kg

DRUGS (1)
  1. TARPEYO [Suspect]
     Active Substance: BUDESONIDE
     Indication: IgA nephropathy
     Route: 048
     Dates: start: 20221220

REACTIONS (6)
  - Mood swings [Unknown]
  - Depressed mood [Unknown]
  - Crying [Unknown]
  - Stress [Unknown]
  - Menstrual disorder [Unknown]
  - Weight abnormal [Unknown]
